FAERS Safety Report 24006868 (Version 7)
Quarter: 2024Q3

REPORT INFORMATION
  Report Type: Spontaneous
  Country: DE (occurrence: DE)
  Receive Date: 20240624
  Receipt Date: 20240912
  Transmission Date: 20241016
  Serious: Yes (Other)
  Sender: ASCEND
  Company Number: DE-Ascend Therapeutics US, LLC-2158485

PATIENT
  Age: 49 Year
  Sex: Female

DRUGS (11)
  1. ESTROGEL [Suspect]
     Active Substance: ESTRADIOL
     Indication: Hormone replacement therapy
     Route: 062
     Dates: start: 20240228, end: 2024
  2. ESTRADIOL HEMIHYDRATE [Suspect]
     Active Substance: ESTRADIOL HEMIHYDRATE
     Route: 062
     Dates: start: 20240228, end: 2024
  3. MAGNESIUM [Concomitant]
     Active Substance: MAGNESIUM
     Route: 065
  4. CALCIUM [Concomitant]
     Active Substance: CALCIUM
     Route: 065
  5. COLLAGEN [Concomitant]
     Active Substance: COLLAGEN
     Route: 065
  6. AZATHIOPRINE [Concomitant]
     Active Substance: AZATHIOPRINE
     Route: 065
  7. Vitamin D NOS?Dose: 2000-4000 IU [Concomitant]
     Route: 065
  8. PROGESTERONE [Suspect]
     Active Substance: PROGESTERONE
     Route: 048
     Dates: start: 2024
  9. PROGESTERONE [Suspect]
     Active Substance: PROGESTERONE
     Route: 048
     Dates: start: 20240306, end: 2024
  10. PROGESTERONE [Suspect]
     Active Substance: PROGESTERONE
     Route: 048
     Dates: start: 20240228, end: 20240306
  11. ESTRADIOL HEMIHYDRATE [Suspect]
     Active Substance: ESTRADIOL HEMIHYDRATE
     Route: 062
     Dates: start: 2024

REACTIONS (12)
  - Crohn^s disease [Unknown]
  - Underdose [Unknown]
  - Palpitations [Unknown]
  - Breast disorder female [Unknown]
  - Product prescribing error [Unknown]
  - Intentional product use issue [Unknown]
  - Breast tenderness [Recovered/Resolved]
  - Headache [Recovered/Resolved]
  - Energy increased [Unknown]
  - Polymenorrhoea [Recovered/Resolved]
  - Breast cyst [Recovered/Resolved]
  - Intermenstrual bleeding [Recovered/Resolved]

NARRATIVE: CASE EVENT DATE: 20240101
